FAERS Safety Report 18269251 (Version 1)
Quarter: 2020Q3

REPORT INFORMATION
  Report Type: Spontaneous
  Country: SE (occurrence: SE)
  Receive Date: 20200915
  Receipt Date: 20200915
  Transmission Date: 20201103
  Serious: Yes (Other)
  Sender: FDA-Public Use
  Company Number: SE-BAYER-2020-189543

PATIENT
  Age: 21 Year
  Sex: Female
  Weight: 76 kg

DRUGS (1)
  1. MIRENA [Suspect]
     Active Substance: LEVONORGESTREL
     Indication: CONTRACEPTION
     Dosage: 20 ?G PER DAY, CONTINUOSLY
     Route: 015
     Dates: start: 201702, end: 202006

REACTIONS (7)
  - Loss of libido [Not Recovered/Not Resolved]
  - Pigmentation disorder [Not Recovered/Not Resolved]
  - Weight increased [Not Recovered/Not Resolved]
  - Acne [Not Recovered/Not Resolved]
  - Discomfort [Not Recovered/Not Resolved]
  - Depressed mood [Not Recovered/Not Resolved]
  - Inadequate lubrication [Not Recovered/Not Resolved]

NARRATIVE: CASE EVENT DATE: 2017
